FAERS Safety Report 9890317 (Version 1)
Quarter: 2014Q1

REPORT INFORMATION
  Report Type: Spontaneous
  Country: IT (occurrence: IT)
  Receive Date: 20140212
  Receipt Date: 20140212
  Transmission Date: 20141002
  Serious: Yes (Other)
  Sender: FDA-Public Use
  Company Number: IT-RANBAXY-2014RR-77943

PATIENT
  Age: 88 Year
  Sex: Female

DRUGS (3)
  1. CETIRIZINE [Suspect]
     Indication: URTICARIA
     Dosage: 1 DF/DAY
     Route: 048
     Dates: start: 20131209, end: 20131215
  2. ZESTRIL [Suspect]
     Indication: PRODUCT USED FOR UNKNOWN INDICATION
     Dosage: 10 MG/DAY
     Route: 048
     Dates: start: 20130101, end: 20131215
  3. CARDIOASPIRIN [Concomitant]
     Indication: PRODUCT USED FOR UNKNOWN INDICATION
     Dosage: 100 MG
     Route: 048

REACTIONS (1)
  - Syncope [Recovering/Resolving]
